FAERS Safety Report 22367260 (Version 5)
Quarter: 2023Q4

REPORT INFORMATION
  Report Type: Report from Study
  Country: NL (occurrence: NL)
  Receive Date: 20230525
  Receipt Date: 20231024
  Transmission Date: 20240109
  Serious: Yes (Hospitalization, Other)
  Sender: FDA-Public Use
  Company Number: NL-002147023-NVSC2023NL105517

PATIENT
  Age: 50 Year
  Sex: Female
  Weight: 97 kg

DRUGS (7)
  1. GEMCITABINE [Suspect]
     Active Substance: GEMCITABINE
     Indication: Cholangiocarcinoma
     Dosage: 2240 MG, Q3W (ON DAYS 1 AND 8)
     Route: 042
     Dates: start: 20230330, end: 20230601
  2. GEMCITABINE [Suspect]
     Active Substance: GEMCITABINE
     Dosage: 2240 MG, Q3W (ON DAYS 1 AND 8)
     Route: 042
     Dates: start: 20230505
  3. AZATHIOPRINE [Suspect]
     Active Substance: AZATHIOPRINE
     Indication: Product used for unknown indication
     Dosage: UNK
     Route: 065
  4. CISPLATIN [Suspect]
     Active Substance: CISPLATIN
     Indication: Cholangiocarcinoma
     Dosage: 56 MG, Q3W (ON DAYS 1 AND 8)
     Route: 042
     Dates: start: 20230330, end: 20230601
  5. CISPLATIN [Suspect]
     Active Substance: CISPLATIN
     Dosage: 56 MG, Q3W (ON DAYS 1 AND 8)
     Route: 042
     Dates: start: 20230505
  6. RIVAROXABAN [Concomitant]
     Active Substance: RIVAROXABAN
     Indication: Product used for unknown indication
     Dosage: UNK
     Route: 065
     Dates: start: 202004
  7. OXYGEN [Concomitant]
     Active Substance: OXYGEN
     Indication: Product used for unknown indication
     Dosage: UNK
     Route: 065
     Dates: start: 202207

REACTIONS (20)
  - Heart rate increased [Unknown]
  - Presyncope [Unknown]
  - Chest discomfort [Unknown]
  - Cough [Unknown]
  - Hyperhidrosis [Unknown]
  - Anaemia [Recovered/Resolved]
  - White blood cell count decreased [Recovered/Resolved]
  - Platelet count decreased [Recovered/Resolved]
  - Malaise [Recovered/Resolved]
  - Myelosuppression [Unknown]
  - Hypophagia [Unknown]
  - General physical health deterioration [Unknown]
  - Faeces discoloured [Unknown]
  - Abdominal pain [Unknown]
  - Fatigue [Unknown]
  - Dyspnoea [Unknown]
  - Chills [Unknown]
  - Vomiting [Unknown]
  - Nausea [Unknown]
  - Pyrexia [Unknown]

NARRATIVE: CASE EVENT DATE: 20230406
